FAERS Safety Report 7944829-1 (Version None)
Quarter: 2011Q4

REPORT INFORMATION
  Report Type: 
  Country: None (occurrence: None)
  Receive Date: 20111129
  Receipt Date: 20111124
  Transmission Date: 20120403
  Serious: Yes (Hospitalization)
  Sender: FDA-Public Use
  Company Number: JP-PFIZER INC-2011284818

PATIENT
  Age: 78 Year
  Sex: Male

DRUGS (2)
  1. LYRICA [Suspect]
     Dosage: 75 MG, 2X/DAY
     Route: 048
     Dates: start: 20110401
  2. HALCION [Concomitant]
     Dosage: UNK
     Route: 048

REACTIONS (5)
  - SALIVARY HYPERSECRETION [None]
  - HYPOAESTHESIA [None]
  - HEARING IMPAIRED [None]
  - HYPOAESTHESIA ORAL [None]
  - TREMOR [None]
